FAERS Safety Report 19888985 (Version 1)
Quarter: 2021Q3

REPORT INFORMATION
  Report Type: Spontaneous
  Country: PL (occurrence: PL)
  Receive Date: 20210928
  Receipt Date: 20210928
  Transmission Date: 20211014
  Serious: Yes (Other)
  Sender: FDA-Public Use
  Company Number: NVSC2021PL219744

PATIENT
  Age: 46 Year
  Sex: Male
  Weight: 104 kg

DRUGS (1)
  1. METHOTREXATE. [Suspect]
     Active Substance: METHOTREXATE
     Indication: SPONDYLOARTHROPATHY
     Dosage: 25 MG, QW
     Route: 048
     Dates: start: 20210102, end: 20210116

REACTIONS (3)
  - Gastrointestinal disorder [Recovered/Resolved]
  - Retching [Recovered/Resolved]
  - Abdominal pain [Recovered/Resolved]

NARRATIVE: CASE EVENT DATE: 202101
